FAERS Safety Report 6340187-7 (Version None)
Quarter: 2009Q3

REPORT INFORMATION
  Report Type: 
  Country: None (occurrence: None)
  Receive Date: 20090902
  Receipt Date: 20090828
  Transmission Date: 20100115
  Serious: Yes (Hospitalization)
  Sender: FDA-Public Use
  Company Number: EUSA 002732009

PATIENT
  Age: 74 Year
  Sex: Male
  Weight: 96 kg

DRUGS (13)
  1. DOCETAXEL [Suspect]
     Indication: PROSTATE CANCER METASTATIC
     Dosage: 75 MG/M2 Q3WEEKS IV
     Route: 042
     Dates: start: 20080827
  2. SM153 [Suspect]
     Indication: PROSTATE CANCER METASTATIC
     Dosage: 1.0 MCI/KG Q9WEEKS IV
     Route: 042
     Dates: start: 20080827
  3. ZOLEDRONIC ACID [Concomitant]
  4. LUPRON [Concomitant]
  5. DECADRON [Concomitant]
  6. PREDNISONE [Concomitant]
  7. OXYCODONE [Concomitant]
  8. MELOXICAM [Concomitant]
  9. IBUPROFEN [Concomitant]
  10. AMBIEN [Concomitant]
  11. COLACE [Concomitant]
  12. METAMUCIL [Concomitant]
  13. CALCIUM [Concomitant]

REACTIONS (4)
  - DIARRHOEA [None]
  - NEUTROPHIL COUNT DECREASED [None]
  - PYREXIA [None]
  - WHITE BLOOD CELL COUNT DECREASED [None]
